FAERS Safety Report 6412113-3 (Version None)
Quarter: 2009Q4

REPORT INFORMATION
  Report Type: 
  Country: None (occurrence: None)
  Receive Date: 20091020
  Receipt Date: 20091007
  Transmission Date: 20100525
  Serious: Yes (Hospitalization)
  Sender: FDA-Public Use
  Company Number: 2009AC000145

PATIENT
  Age: 62 Year
  Sex: Male

DRUGS (30)
  1. DIGOXIN [Suspect]
     Dosage: 0.25 MG; QD; PO
     Route: 048
     Dates: start: 20060201
  2. AMOXICILLIN [Concomitant]
  3. WARFARIN SODIUM [Concomitant]
  4. METOPROLOL TARTRATE [Concomitant]
  5. LISINOPRIL [Concomitant]
  6. HYDROCODONE BITARTRATE AND ACETAMINOPHEN [Concomitant]
  7. SIMVASTATIN [Concomitant]
  8. CITALOPRAM HYDROBROMIDE [Concomitant]
  9. LOVENOX [Concomitant]
  10. COTRIM [Concomitant]
  11. METRONIDAZOL [Concomitant]
  12. CLONAZEPAM [Concomitant]
  13. ROPINIROLE [Concomitant]
  14. ALPRAZOLAM [Concomitant]
  15. NASONEX [Concomitant]
  16. TOPROL-XL [Concomitant]
  17. SERTRALINE HCL [Concomitant]
  18. TRIMOX [Concomitant]
  19. NIFEREX [Concomitant]
  20. MAVIK [Concomitant]
  21. DOVENOX [Concomitant]
  22. AMBIEN [Concomitant]
  23. ACETAMINOPHEN [Concomitant]
  24. CRESTOR [Concomitant]
  25. ZOCOR [Concomitant]
  26. WARFARIN SODIUM [Concomitant]
  27. LISINOPRIL [Concomitant]
  28. METOPROLOL TARTRATE [Concomitant]
  29. ASPIRIN [Concomitant]
  30. FISH OIL [Concomitant]

REACTIONS (6)
  - BLOOD PRESSURE INCREASED [None]
  - BRADYCARDIA [None]
  - DYSPNOEA [None]
  - FATIGUE [None]
  - MULTIPLE INJURIES [None]
  - PAIN [None]
